FAERS Safety Report 23269074 (Version 1)
Quarter: 2023Q4

REPORT INFORMATION
  Report Type: Report from Study
  Country: US (occurrence: US)
  Receive Date: 20231206
  Receipt Date: 20231206
  Transmission Date: 20240109
  Serious: Yes (Other)
  Sender: FDA-Public Use
  Company Number: US-TAKEDA-US202023310

PATIENT
  Sex: Female

DRUGS (2)
  1. HUMAN IMMUNOGLOBULIN G\HYALURONIDASE RECOMBINANT HUMAN [Suspect]
     Active Substance: HUMAN IMMUNOGLOBULIN G\HYALURONIDASE (HUMAN RECOMBINANT)
     Indication: Primary immunodeficiency syndrome
     Dosage: UNK, 2/MONTH
     Route: 065
  2. HUMAN IMMUNOGLOBULIN G\HYALURONIDASE RECOMBINANT HUMAN [Suspect]
     Active Substance: HUMAN IMMUNOGLOBULIN G\HYALURONIDASE (HUMAN RECOMBINANT)
     Indication: Immunodeficiency common variable
     Dosage: UNK, 1/WEEK
     Route: 065

REACTIONS (15)
  - Pneumonia [Unknown]
  - Poor peripheral circulation [Unknown]
  - Feeling abnormal [Unknown]
  - Fibromyalgia [Unknown]
  - Joint swelling [Unknown]
  - White blood cell count decreased [Unknown]
  - COVID-19 [Unknown]
  - Pain [Unknown]
  - Infection [Unknown]
  - Influenza [Unknown]
  - Oropharyngeal pain [Unknown]
  - Asthma [Unknown]
  - Arthralgia [Unknown]
  - Fatigue [Unknown]
  - Inappropriate schedule of product administration [Unknown]
